FAERS Safety Report 7859364-9 (Version None)
Quarter: 2011Q4

REPORT INFORMATION
  Report Type: 
  Country: None (occurrence: None)
  Receive Date: 20111027
  Receipt Date: 20111018
  Transmission Date: 20120403
  Serious: Yes (Other)
  Sender: FDA-Public Use
  Company Number: US-BAYER-US-2006-038324

PATIENT
  Age: 55 Year
  Sex: Female
  Weight: 93.878 kg

DRUGS (23)
  1. MODAFINIL [Concomitant]
     Dosage: DAILY DOSE 400 MG
  2. OMEPRAZOLE SODIUM [Concomitant]
     Dosage: 20 MG, 2X/DAY
  3. UBIDECARENONE [Concomitant]
     Dosage: UNK, 1X/DAY
  4. BETASERON [Suspect]
     Dosage: 8 MIU, EVERY 2D
     Route: 058
  5. LISINOPRIL [Concomitant]
     Dosage: DAILY DOSE 20 MG
  6. CITALOPRAM HYDROBROMIDE [Concomitant]
     Dosage: DAILY DOSE 40 MG
  7. TRAZODONE HYDROCHLORIDE [Concomitant]
     Dosage: 150 MG/D, P.M.
  8. ALENDRONATE SODIUM [Concomitant]
     Dosage: 70 MG, 1X/WEEK
  9. CLONIDINE HYDROCHLORIDE [Concomitant]
     Dosage: .1 MG, 3X/DAY
  10. LYSINE [Concomitant]
     Dosage: UNK, 1X/DAY
  11. METHACHOLINE CHLORIDE [Suspect]
     Indication: ASTHMA
     Dosage: UNK
     Dates: start: 20111017, end: 20111024
  12. GABAPENTIN [Concomitant]
     Dosage: 400 MG, 3X/DAY
  13. DONEPEZIL HYDROCHLORIDE [Concomitant]
     Dosage: 10 MG/D, A.M.
  14. SIMVASTATIN [Concomitant]
     Dosage: 40 MG/D, P.M.
  15. HYDROCHLOROTHIAZIDE [Concomitant]
     Dosage: DAILY DOSE 6 MG
  16. POTASSIUM CHLORIDE [Concomitant]
     Dosage: 8 MEQ, EVERY 2D
     Route: 048
  17. BACLOFEN [Concomitant]
     Dosage: 10 MG, 3X/DAY
  18. TOLTERODINE TARTRATE [Concomitant]
     Dosage: 4 MG, 2X/DAY
  19. HERBAL EXTRACT NOS [Concomitant]
     Dosage: UNK, 2X/DAY
  20. LORATADINE [Concomitant]
     Dosage: 10 MG/D, AS REQ'D
  21. PARACETAMOL, HYDROCODONE BITARTRATE [Concomitant]
     Dosage: 10/325MG, 3X/DAY AS REQUIRED
  22. DIAZEPAM [Concomitant]
     Dosage: 10 MG/D, P.M.
  23. BETASERON [Suspect]
     Indication: RELAPSING-REMITTING MULTIPLE SCLEROSIS
     Dosage: 8 MIU, EVERY 2D
     Route: 058
     Dates: start: 20010606

REACTIONS (5)
  - RETINAL DEGENERATION [None]
  - DYSPNOEA [None]
  - COUGH [None]
  - ASTHMA [None]
  - MACULOPATHY [None]
